FAERS Safety Report 16833392 (Version 1)
Quarter: 2019Q3

REPORT INFORMATION
  Report Type: Report from Study
  Country: BR (occurrence: BR)
  Receive Date: 20190920
  Receipt Date: 20190920
  Transmission Date: 20191005
  Serious: Yes (Hospitalization)
  Sender: FDA-Public Use
  Company Number: BR-UCBSA-2019039377

PATIENT
  Age: 7 Year
  Sex: Male
  Weight: 28 kg

DRUGS (3)
  1. TOPIRAMATO [Concomitant]
     Active Substance: TOPIRAMATE
     Indication: EPILEPSY
     Dosage: 2 TABLETS IN THE MORNING / 1 TABLET AT NIGHT, 2X/DAY (BID)
     Route: 048
     Dates: start: 2015
  2. CLOBAZAM. [Concomitant]
     Active Substance: CLOBAZAM
     Indication: EPILEPSY
     Dosage: 10 MILLIGRAM, 2X/DAY (BID)
     Route: 048
     Dates: start: 2013
  3. LEVETIRACETAM. [Suspect]
     Active Substance: LEVETIRACETAM
     Indication: EPILEPSY
     Dosage: ? TABLET IN THE MORNING AND 1 TABLET AT NIGHT, 2X/DAY (BID)
     Route: 048
     Dates: start: 201806

REACTIONS (2)
  - Off label use [Unknown]
  - Hip surgery [Recovered/Resolved]

NARRATIVE: CASE EVENT DATE: 201806
